FAERS Safety Report 9772754 (Version 1)
Quarter: 2013Q4

REPORT INFORMATION
  Report Type: Spontaneous
  Country: US (occurrence: US)
  Receive Date: 20131219
  Receipt Date: 20131219
  Transmission Date: 20140711
  Serious: No
  Sender: FDA-Public Use
  Company Number: US-PFIZER INC-2013361649

PATIENT
  Age: 53 Year
  Sex: Female
  Weight: 81.63 kg

DRUGS (8)
  1. NARDIL [Suspect]
     Indication: DEPRESSION
     Dosage: 15 MG, 5X/DAY
     Route: 048
  2. NARDIL [Suspect]
     Indication: ASTHENIA
  3. PHENELZINE SULFATE [Suspect]
     Indication: DEPRESSION
     Dosage: UNK
  4. PHENELZINE SULFATE [Suspect]
     Indication: ASTHENIA
  5. ATIVAN [Concomitant]
     Dosage: UNK
  6. LORAZEPAM [Concomitant]
     Indication: INSOMNIA
     Dosage: 2 MG, 2X/DAY
  7. NEURONTIN [Concomitant]
     Indication: ANXIETY
     Dosage: 300 MG, 3X/DAY
  8. NEURONTIN [Concomitant]
     Indication: SLEEP DISORDER

REACTIONS (3)
  - Drug ineffective for unapproved indication [Unknown]
  - Physical product label issue [Unknown]
  - Product tampering [Unknown]
